FAERS Safety Report 14101411 (Version 2)
Quarter: 2017Q4

REPORT INFORMATION
  Report Type: Spontaneous
  Country: US (occurrence: US)
  Receive Date: 20171018
  Receipt Date: 20171124
  Transmission Date: 20180321
  Serious: No
  Sender: FDA-Public Use
  Company Number: US-PFIZER INC-2017446033

PATIENT
  Age: 27 Year
  Sex: Male
  Weight: 113.4 kg

DRUGS (1)
  1. CHILDRENS ADVIL [Suspect]
     Active Substance: IBUPROFEN
     Dosage: NOT EVEN A HALF OF A MILLILITER
     Dates: start: 20171008

REACTIONS (5)
  - Product physical issue [Recovered/Resolved]
  - Dysgeusia [Recovered/Resolved]
  - Poor quality drug administered [Recovered/Resolved]
  - Product taste abnormal [Recovered/Resolved]
  - Intentional product misuse [Unknown]

NARRATIVE: CASE EVENT DATE: 20171008
